FAERS Safety Report 22386833 (Version 1)
Quarter: 2023Q2

REPORT INFORMATION
  Report Type: Spontaneous
  Country: FR (occurrence: FR)
  Receive Date: 20230531
  Receipt Date: 20230531
  Transmission Date: 20230721
  Serious: Yes (Life-Threatening)
  Sender: FDA-Public Use
  Company Number: None

PATIENT
  Age: 46 Year
  Sex: Female

DRUGS (7)
  1. VIMPAT [Suspect]
     Active Substance: LACOSAMIDE
     Indication: Product administration error
     Dosage: 2CP X 100MG
     Route: 048
     Dates: start: 20230507
  2. TEGRETOL [Suspect]
     Active Substance: CARBAMAZEPINE
     Indication: Product administration error
     Dosage: 200 MILLIGRAM
     Route: 048
     Dates: start: 20230507
  3. ZONEGRAN [Suspect]
     Active Substance: ZONISAMIDE
     Indication: Product administration error
     Dosage: 2 CAPSULES X 200 MG
     Route: 048
     Dates: start: 20230507
  4. ALFUZOSIN [Suspect]
     Active Substance: ALFUZOSIN
     Indication: Product administration error
     Dosage: 1CP
     Route: 048
     Dates: start: 20230507
  5. DAFALGAN [Suspect]
     Active Substance: ACETAMINOPHEN
     Indication: Product administration error
     Dosage: 1 GRAM
     Route: 048
     Dates: start: 20230507
  6. BUPRENORPHINE HYDROCHLORIDE [Suspect]
     Active Substance: BUPRENORPHINE HYDROCHLORIDE
     Indication: Product administration error
     Dosage: 2X0.2MG
     Route: 048
     Dates: start: 20230507
  7. RIVOTRIL [Suspect]
     Active Substance: CLONAZEPAM
     Indication: Product administration error
     Dosage: 1/2CP X 2MG
     Route: 048
     Dates: start: 20230507

REACTIONS (2)
  - Coma [Unknown]
  - Product administration error [Unknown]

NARRATIVE: CASE EVENT DATE: 20230507
